FAERS Safety Report 4434672-2 (Version None)
Quarter: 2004Q3

REPORT INFORMATION
  Report Type: 
  Country: None (occurrence: None)
  Receive Date: 20040827
  Receipt Date: 20040817
  Transmission Date: 20050211
  Serious: Yes (Life-Threatening, Hospitalization)
  Sender: FDA-Public Use
  Company Number: NSADSS2002018950

PATIENT
  Sex: Female
  Weight: 60 kg

DRUGS (9)
  1. REMICADE [Suspect]
     Indication: CROHN'S DISEASE
     Route: 041
     Dates: start: 20020418
  2. METHOTREXATE [Suspect]
     Indication: CROHN'S DISEASE
     Route: 049
     Dates: start: 20020409
  3. ZOCOR [Concomitant]
     Indication: ACUTE MYOCARDIAL INFARCTION
     Route: 049
  4. PENTASA [Concomitant]
     Route: 049
  5. PENTASA [Concomitant]
     Indication: CROHN'S DISEASE
     Route: 049
  6. ALBYL-E [Concomitant]
     Route: 049
  7. ALBYL-E [Concomitant]
     Route: 049
  8. TENORMIN [Concomitant]
     Route: 049
  9. ENTOCORT EC [Concomitant]
     Indication: CROHN'S DISEASE
     Route: 049

REACTIONS (21)
  - ABDOMINAL ADHESIONS [None]
  - ANOREXIA [None]
  - ARTHRALGIA [None]
  - ATELECTASIS [None]
  - CONDITION AGGRAVATED [None]
  - CROHN'S DISEASE [None]
  - DEPRESSION [None]
  - FUNGAL INFECTION [None]
  - HEART RATE IRREGULAR [None]
  - HYPOTENSION [None]
  - ILEAL PERFORATION [None]
  - INFLUENZA LIKE ILLNESS [None]
  - LARGE INTESTINE PERFORATION [None]
  - MYALGIA [None]
  - PERITONITIS [None]
  - PNEUMONIA [None]
  - POSTOPERATIVE INFECTION [None]
  - SUBILEUS [None]
  - THERAPEUTIC RESPONSE DECREASED [None]
  - THERAPY NON-RESPONDER [None]
  - WEIGHT DECREASED [None]
